FAERS Safety Report 4771085-8 (Version None)
Quarter: 2005Q3

REPORT INFORMATION
  Report Type: 
  Country: None (occurrence: None)
  Receive Date: 20050914
  Receipt Date: 20050826
  Transmission Date: 20060218
  Serious: Yes (Hospitalization, Other)
  Sender: FDA-Public Use
  Company Number: USA0508106560

PATIENT
  Age: 60 Year
  Sex: Female

DRUGS (2)
  1. HUMALOG [Suspect]
     Indication: DIABETES MELLITUS
  2. LANTUS [Concomitant]

REACTIONS (9)
  - BALANCE DISORDER [None]
  - BLOOD GLUCOSE INCREASED [None]
  - CEREBROVASCULAR ACCIDENT [None]
  - EYE HAEMORRHAGE [None]
  - EYE PAIN [None]
  - HEADACHE [None]
  - PHARMACEUTICAL PRODUCT COMPLAINT [None]
  - RETINOPATHY [None]
  - TRANSIENT ISCHAEMIC ATTACK [None]
